FAERS Safety Report 7098050-2 (Version None)
Quarter: 2010Q4

REPORT INFORMATION
  Report Type: 
  Country: None (occurrence: None)
  Receive Date: 20101112
  Receipt Date: 20100529
  Transmission Date: 20110411
  Serious: No
  Sender: FDA-Public Use
  Company Number: US-BAYER-201024378NA

PATIENT
  Age: 53 Year
  Sex: Female

DRUGS (2)
  1. LEUKINE [Suspect]
     Indication: NEOPLASM MALIGNANT
     Dosage: 14 DAYS ON AND 14 DAYS OFF
     Route: 058
  2. CELEXA [Concomitant]

REACTIONS (3)
  - INJECTION SITE ERYTHEMA [None]
  - INJECTION SITE RASH [None]
  - INJECTION SITE WARMTH [None]
